FAERS Safety Report 4529320-7 (Version None)
Quarter: 2004Q4

REPORT INFORMATION
  Report Type: 
  Country: None (occurrence: None)
  Receive Date: 20041214
  Receipt Date: 20041201
  Transmission Date: 20050328
  Serious: Yes (Other)
  Sender: FDA-Public Use
  Company Number: 2003020878

PATIENT
  Age: 43 Year
  Sex: Female

DRUGS (1)
  1. ATARAX [Suspect]
     Indication: RASH
     Dosage: 25 MG (1 D), ORAL
     Route: 048
     Dates: start: 20021215, end: 20021230

REACTIONS (3)
  - BLEPHAROSPASM [None]
  - DYSKINESIA [None]
  - MEIGE'S SYNDROME [None]
